FAERS Safety Report 16513799 (Version 1)
Quarter: 2019Q3

REPORT INFORMATION
  Report Type: Spontaneous
  Country: US (occurrence: US)
  Receive Date: 20190702
  Receipt Date: 20190702
  Transmission Date: 20191004
  Serious: No
  Sender: FDA-Public Use
  Company Number: US-BAYER-2019-122407

PATIENT
  Age: 47 Year
  Sex: Female
  Weight: 93.8 kg

DRUGS (1)
  1. AVELOX [Suspect]
     Active Substance: MOXIFLOXACIN HYDROCHLORIDE
     Dosage: UNK
     Dates: start: 20100317

REACTIONS (2)
  - Drug hypersensitivity [None]
  - Oral discomfort [None]

NARRATIVE: CASE EVENT DATE: 20181018
